FAERS Safety Report 9164161 (Version 1)
Quarter: 2013Q1

REPORT INFORMATION
  Report Type: Spontaneous
  Country: US (occurrence: None)
  Receive Date: 20130313
  Receipt Date: 20130313
  Transmission Date: 20140127
  Serious: Yes (Other)
  Sender: FDA-Public Use
  Company Number: None

PATIENT
  Age: 42 Year
  Sex: Female
  Weight: 54.43 kg

DRUGS (1)
  1. PROMETRIUM [Suspect]
     Indication: MENOPAUSAL SYMPTOMS
     Route: 048

REACTIONS (12)
  - Vertigo [None]
  - Dizziness [None]
  - Disorientation [None]
  - Impaired driving ability [None]
  - Impaired work ability [None]
  - Feeling drunk [None]
  - Gait disturbance [None]
  - Fatigue [None]
  - Muscle spasms [None]
  - Tinnitus [None]
  - Dysarthria [None]
  - Cognitive disorder [None]
